FAERS Safety Report 25068624 (Version 2)
Quarter: 2025Q3

REPORT INFORMATION
  Report Type: Spontaneous
  Country: EU (occurrence: EU)
  Receive Date: 20250312
  Receipt Date: 20250807
  Transmission Date: 20251021
  Serious: Yes (Other)
  Sender: AUROBINDO
  Company Number: EU-AFSSAPS-PA2025000219

PATIENT
  Age: 77 Year
  Sex: Male
  Weight: 67.3 kg

DRUGS (3)
  1. AMOXICILLIN [Suspect]
     Active Substance: AMOXICILLIN
     Indication: Osteitis
     Dosage: 9 GRAM, ONCE A DAY
     Route: 048
     Dates: start: 20250206, end: 20250217
  2. AMOXICILLIN [Suspect]
     Active Substance: AMOXICILLIN
     Dosage: 1500 GRAM, ONCE A DAY
     Route: 048
     Dates: start: 20250217, end: 20250221
  3. LEVOFLOXACIN [Suspect]
     Active Substance: LEVOFLOXACIN
     Indication: Osteitis
     Dosage: 500 MILLIGRAM, ONCE A DAY
     Route: 048
     Dates: start: 20250206

REACTIONS (2)
  - Acute kidney injury [Recovered/Resolved]
  - Crystalluria [Recovered/Resolved]

NARRATIVE: CASE EVENT DATE: 20250213
